FAERS Safety Report 6609837-1 (Version None)
Quarter: 2010Q1

REPORT INFORMATION
  Report Type: 
  Country: None (occurrence: None)
  Receive Date: 20100302
  Receipt Date: 20100218
  Transmission Date: 20100710
  Serious: Yes (Other)
  Sender: FDA-Public Use
  Company Number: PHHY2010JP08207

PATIENT
  Age: 55 Year
  Sex: Male

DRUGS (3)
  1. LOCHOL [Suspect]
     Indication: HEPATITIS C
     Dosage: 30 MG PER DAY
     Route: 048
     Dates: start: 20091227, end: 20100130
  2. REBETOL [Concomitant]
     Dosage: 4 DF, UNK
     Route: 048
     Dates: start: 20091222
  3. PEG-INTRON [Concomitant]
     Dosage: 80 UG, UNK
     Route: 058
     Dates: start: 20091222

REACTIONS (4)
  - BACK PAIN [None]
  - HYPOAESTHESIA [None]
  - MUSCULAR WEAKNESS [None]
  - MUSCULOSKELETAL PAIN [None]
